FAERS Safety Report 10663509 (Version 2)
Quarter: 2015Q1

REPORT INFORMATION
  Report Type: Report from Study
  Country: DE (occurrence: DE)
  Receive Date: 20141219
  Receipt Date: 20150119
  Transmission Date: 20150720
  Serious: Yes (Other)
  Sender: FDA-Public Use
  Company Number: DE-ABBVIE-14K-062-1322225-00

PATIENT
  Age: 53 Year
  Sex: Female
  Weight: 62 kg

DRUGS (2)
  1. HUMIRA [Suspect]
     Active Substance: ADALIMUMAB
     Indication: CROHN^S DISEASE
     Route: 058
     Dates: start: 20130716, end: 20141112
  2. ENTEROPLANT [Concomitant]
     Indication: FLATULENCE
     Dates: start: 2013

REACTIONS (5)
  - SLE arthritis [Recovering/Resolving]
  - Lupus-like syndrome [Recovering/Resolving]
  - Night sweats [Recovering/Resolving]
  - Polyarthritis [Recovering/Resolving]
  - White blood cell count increased [Unknown]

NARRATIVE: CASE EVENT DATE: 201409
